FAERS Safety Report 8830395 (Version 1)
Quarter: 2012Q4

REPORT INFORMATION
  Report Type: 
  Country: US (occurrence: None)
  Receive Date: 20121004
  Receipt Date: 20121004
  Transmission Date: 20130627
  Serious: Yes (Hospitalization)
  Sender: FDA-Public Use
  Company Number: AUR-APL-2012-04112

PATIENT
  Sex: Female
  Weight: 68.04 kg

DRUGS (6)
  1. TRIMETHOPRIM AND SULFAMETHOXAZOLE [Suspect]
     Indication: UTI
     Dates: start: 20120127
  2. TRIMETHOPRIM AND SULFAMETHOXAZOLE [Suspect]
     Indication: UTI
     Dates: start: 20120315
  3. ARMOUR THYROID (THYROID) [Concomitant]
  4. HYZAAR (HYZAAR   /01284801/) [Concomitant]
  5. LIPITOR (ATORVASTATIN CALCIUM) [Concomitant]
  6. ALLOPURINOL (ALLOPURINOL) [Concomitant]

REACTIONS (4)
  - Swelling face [None]
  - Tongue oedema [None]
  - Erythema [None]
  - Aphonia [None]
